FAERS Safety Report 24142398 (Version 1)
Quarter: 2024Q3

REPORT INFORMATION
  Report Type: Spontaneous
  Country: US (occurrence: None)
  Receive Date: 20240726
  Receipt Date: 20240726
  Transmission Date: 20241017
  Serious: Yes (Other)
  Sender: Public
  Company Number: None

PATIENT
  Age: 48 Year
  Sex: Female
  Weight: 90.45 kg

DRUGS (1)
  1. OZEMPIC [Suspect]
     Active Substance: SEMAGLUTIDE
     Indication: Type 2 diabetes mellitus
     Dosage: OTHER QUANTITY : 1 INJECTION(S);?OTHER FREQUENCY : ONCE WEEKLY;?
     Route: 058
     Dates: start: 20240722, end: 20240722

REACTIONS (7)
  - Headache [None]
  - Nausea [None]
  - Vomiting [None]
  - Constipation [None]
  - Abdominal X-ray [None]
  - Flatulence [None]
  - Blood potassium decreased [None]

NARRATIVE: CASE EVENT DATE: 20240725
